FAERS Safety Report 23249201 (Version 1)
Quarter: 2023Q4

REPORT INFORMATION
  Report Type: Report from Study
  Country: CN (occurrence: CN)
  Receive Date: 20231201
  Receipt Date: 20231201
  Transmission Date: 20240109
  Serious: Yes (Other)
  Sender: FDA-Public Use
  Company Number: CN-002147023-NVSC2023CN252170

PATIENT
  Sex: Male

DRUGS (1)
  1. LEQVIO [Suspect]
     Active Substance: INCLISIRAN SODIUM
     Indication: Hyperlipidaemia
     Dosage: 1.5 ML, OTHER, (AFTER THE FIRST ADMINISTRATION, THE MEDICATION WAS ADMINISTERED AGAIN AT 3 MONTHS AN
     Route: 058
     Dates: start: 20231022

REACTIONS (5)
  - Aspartate aminotransferase increased [Unknown]
  - Gamma-glutamyltransferase increased [Unknown]
  - Leucine aminopeptidase increased [Unknown]
  - Blood creatinine decreased [Unknown]
  - Blood triglycerides increased [Unknown]
